FAERS Safety Report 14851872 (Version 1)
Quarter: 2018Q2

REPORT INFORMATION
  Report Type: Spontaneous
  Country: FR (occurrence: FR)
  Receive Date: 20180507
  Receipt Date: 20180507
  Transmission Date: 20180711
  Serious: Yes (Hospitalization)
  Sender: FDA-Public Use
  Company Number: FR-MERCK KGAA-2047278

PATIENT
  Age: 78 Year

DRUGS (10)
  1. NOVOTHYROX [Suspect]
     Active Substance: LEVOTHYROXINE SODIUM
     Indication: PRODUCT USED FOR UNKNOWN INDICATION
     Route: 048
  2. PERINDOPRIL INDAPAMIDE ARROW 4 MG/1,25 MG [Suspect]
     Active Substance: INDAPAMIDE\PERINDOPRIL ERBUMINE
     Route: 048
     Dates: end: 20180413
  3. PREGABALINE ARROW LAB 50 MG [Concomitant]
     Route: 048
  4. PARACETAMOL ALMUS [Concomitant]
     Route: 048
  5. VOLTARENE EMULGEL 1% [Concomitant]
     Active Substance: DICLOFENAC DIETHYLAMINE
     Route: 048
  6. BROMAZEPAM ARROW 6 MG [Concomitant]
     Route: 048
  7. TRAMADOL ARROW L.P. 100 MG [Concomitant]
     Route: 048
  8. KESTIN 10 MG [Concomitant]
     Route: 048
  9. LEVOTHYROX [Concomitant]
     Active Substance: LEVOTHYROXINE
     Route: 048
  10. GAVISCON [Concomitant]
     Active Substance: ALUMINUM HYDROXIDE\MAGNESIUM CARBONATE
     Route: 048

REACTIONS (4)
  - Tongue oedema [Recovered/Resolved]
  - Hypersensitivity [None]
  - Angioedema [None]
  - Angioedema [Recovered/Resolved]

NARRATIVE: CASE EVENT DATE: 20180412
